FAERS Safety Report 8885733 (Version 1)
Quarter: 2012Q4

REPORT INFORMATION
  Report Type: 
  Country: US (occurrence: US)
  Receive Date: 20121102
  Receipt Date: 20121102
  Transmission Date: 20130627
  Serious: Yes (Other)
  Sender: FDA-Public Use
  Company Number: US-PFIZER INC-2012272584

PATIENT
  Age: 68 Year
  Sex: Male
  Weight: 103 kg

DRUGS (12)
  1. ACCUPRIL [Suspect]
     Dosage: 20 mg, daily
     Route: 048
  2. NORVASC [Suspect]
     Dosage: 10 mg, daily
     Route: 048
  3. LIPITOR [Suspect]
     Dosage: 40 mg, daily
     Route: 048
  4. TOPROL XL [Concomitant]
     Indication: BLOOD PRESSURE ABNORMAL
     Dosage: 100 mg, daily
  5. ISOSORBIDE [Concomitant]
     Indication: ANGINA PECTORIS
     Dosage: 120 mg, daily
  6. ASPIRIN [Concomitant]
     Indication: ARTERIAL OCCLUSION
     Dosage: 81 mg, daily
  7. GLYBURIDE [Concomitant]
     Indication: DIABETES
     Dosage: UNK, daily
  8. PRILOSEC [Concomitant]
     Indication: ACID REFLUX (ESOPHAGEAL)
     Dosage: 20 mg, daily
  9. ALLOPURINOL [Concomitant]
     Indication: GOUT
     Dosage: UNK
  10. VITAMIN D [Concomitant]
     Indication: ARTERIAL OCCLUSION
     Dosage: 4000 IU, daily
  11. FISH OIL [Concomitant]
     Indication: ARTERIAL OCCLUSION
     Dosage: 2000 IU, daily
  12. VITAMIN B12 [Concomitant]
     Indication: RENAL DISORDER
     Dosage: UNK, Monthly

REACTIONS (1)
  - Myocardial infarction [Recovered/Resolved]
